FAERS Safety Report 10891919 (Version 1)
Quarter: 2015Q1

REPORT INFORMATION
  Report Type: Spontaneous
  Country: JP (occurrence: JP)
  Receive Date: 20150306
  Receipt Date: 20150306
  Transmission Date: 20150721
  Serious: Yes (Hospitalization)
  Sender: FDA-Public Use
  Company Number: JP-JNJFOC-20150300435

PATIENT
  Age: 26 Year
  Sex: Male

DRUGS (5)
  1. CIRCANETTEN [Concomitant]
     Active Substance: KERATIN\SENNA LEAF
     Route: 048
  2. REMICADE [Suspect]
     Active Substance: INFLIXIMAB
     Indication: CROHN^S DISEASE
     Route: 042
     Dates: start: 20141217
  3. REMICADE [Suspect]
     Active Substance: INFLIXIMAB
     Indication: CROHN^S DISEASE
     Route: 042
     Dates: start: 20141203
  4. PENTASA [Concomitant]
     Active Substance: MESALAMINE
     Route: 048
     Dates: start: 20100618
  5. ELENTAL [Concomitant]
     Dosage: 6 DOSAGE FORMS
     Route: 048
     Dates: start: 20100618

REACTIONS (2)
  - Oropharyngeal pain [Unknown]
  - Pulmonary tuberculosis [Unknown]

NARRATIVE: CASE EVENT DATE: 20150114
